FAERS Safety Report 23979298 (Version 1)
Quarter: 2024Q2

REPORT INFORMATION
  Report Type: Spontaneous
  Country: GB (occurrence: GB)
  Receive Date: 20240615
  Receipt Date: 20240615
  Transmission Date: 20240716
  Serious: Yes (Disabling, Other)
  Sender: FDA-Public Use
  Company Number: None

PATIENT
  Sex: Female
  Weight: 95 kg

DRUGS (2)
  1. SERTRALINE [Suspect]
     Active Substance: SERTRALINE HYDROCHLORIDE
     Indication: Borderline personality disorder
     Dosage: 150MG A DAY
     Dates: start: 20230630, end: 20240510
  2. LEVOTHYROXINE [Concomitant]
     Active Substance: LEVOTHYROXINE\LEVOTHYROXINE SODIUM
     Indication: Hypothyroidism
     Dates: start: 20130212

REACTIONS (8)
  - Brain fog [Unknown]
  - Diarrhoea [Unknown]
  - Memory impairment [Unknown]
  - Dysarthria [Unknown]
  - Liver function test abnormal [Unknown]
  - Oropharyngeal pain [Unknown]
  - Migraine [Unknown]
  - Mania [Recovered/Resolved]

NARRATIVE: CASE EVENT DATE: 20231023
